FAERS Safety Report 12202244 (Version 1)
Quarter: 2016Q1

REPORT INFORMATION
  Report Type: Report from Study
  Country: BR (occurrence: BR)
  Receive Date: 20160322
  Receipt Date: 20160322
  Transmission Date: 20160526
  Serious: Yes (Other)
  Sender: FDA-Public Use
  Company Number: PHHY2016BR037597

PATIENT
  Age: 53 Year
  Sex: Male
  Weight: 83 kg

DRUGS (1)
  1. GLIVEC [Suspect]
     Active Substance: IMATINIB MESYLATE
     Indication: CHRONIC MYELOID LEUKAEMIA
     Dosage: 2 DF, QD
     Route: 048
     Dates: start: 200104

REACTIONS (11)
  - Sleep apnoea syndrome [Recovering/Resolving]
  - Weight decreased [Recovering/Resolving]
  - Viral infection [Recovering/Resolving]
  - Anal fistula [Recovering/Resolving]
  - Skin mass [Unknown]
  - Diarrhoea [Recovering/Resolving]
  - Proctalgia [Unknown]
  - Tooth abscess [Recovered/Resolved with Sequelae]
  - Chest pain [Unknown]
  - Lactose intolerance [Recovering/Resolving]
  - Tooth loss [Unknown]

NARRATIVE: CASE EVENT DATE: 201511
